FAERS Safety Report 7449815-6 (Version None)
Quarter: 2011Q2

REPORT INFORMATION
  Report Type: 
  Country: None (occurrence: None)
  Receive Date: 20110502
  Receipt Date: 20110427
  Transmission Date: 20111010
  Serious: Yes (Death, Disabling)
  Sender: FDA-Public Use
  Company Number: JP-ELI_LILLY_AND_COMPANY-JP201006007725

PATIENT
  Age: 71 Year
  Sex: Male
  Weight: 69 kg

DRUGS (18)
  1. CARBOPLATIN [Concomitant]
     Indication: LUNG ADENOCARCINOMA STAGE III
     Dosage: 450 MG, UNKNOWN
     Route: 042
     Dates: start: 20091105, end: 20100107
  2. RENIVACE [Concomitant]
     Indication: HYPERTENSION
     Dosage: UNK, UNKNOWN
     Route: 048
     Dates: end: 20100201
  3. PRORENAL [Concomitant]
     Indication: ARTERIAL OCCLUSIVE DISEASE
     Dosage: UNK, UNKNOWN
     Route: 048
     Dates: end: 20100201
  4. ITOROL [Concomitant]
     Indication: HYPERTENSION
     Dosage: UNK, UNKNOWN
     Route: 048
     Dates: end: 20100201
  5. SELOKEN [Concomitant]
     Indication: HYPERTENSION
     Dosage: UNK, UNKNOWN
     Route: 048
     Dates: end: 20100201
  6. ASPIRIN [Concomitant]
     Indication: ARTERIAL OCCLUSIVE DISEASE
     Dosage: UNK, UNKNOWN
     Route: 048
     Dates: end: 20100201
  7. PEMETREXED [Suspect]
     Indication: NON-SMALL CELL LUNG CANCER STAGE IIIA
     Dosage: 500 MG/M2, UNKNOWN
     Route: 042
     Dates: start: 20091105, end: 20100107
  8. METHYCOBAL [Concomitant]
     Dosage: 1 MG, UNKNOWN
     Route: 030
     Dates: start: 20091029, end: 20100205
  9. BASEN [Concomitant]
     Indication: DIABETES MELLITUS
     Dosage: UNK, UNKNOWN
     Route: 048
     Dates: end: 20100201
  10. AMARYL [Concomitant]
     Indication: DIABETES MELLITUS
     Dosage: UNK, UNKNOWN
     Route: 048
     Dates: end: 20100201
  11. CARBOPLATIN [Concomitant]
     Dosage: 440 MG, UNKNOWN
     Route: 042
     Dates: start: 20100204, end: 20100204
  12. BLOPRESS [Concomitant]
     Indication: HYPERTENSION
     Dosage: UNK, UNKNOWN
     Route: 048
     Dates: end: 20100201
  13. DECADRON [Concomitant]
     Dosage: 6.6 MG, UNKNOWN
     Route: 042
     Dates: start: 20091105, end: 20100107
  14. GRANISETRON HCL [Concomitant]
     Dosage: 3 MG, UNKNOWN
     Route: 042
     Dates: start: 20091105, end: 20100107
  15. LASIX [Concomitant]
     Indication: HYPERTENSION
     Dosage: UNK, UNKNOWN
     Route: 065
     Dates: end: 20100201
  16. PEMETREXED [Suspect]
     Dosage: 500 MG, UNKNOWN
     Route: 042
     Dates: start: 20100204, end: 20100204
  17. PANVITAN [Concomitant]
     Dosage: 0.5 MG, UNKNOWN
     Route: 048
     Dates: start: 20091028, end: 20100201
  18. OMEPRAL [Concomitant]
     Indication: PROPHYLAXIS
     Dosage: UNK, UNKNOWN
     Route: 065
     Dates: start: 20100112, end: 20100201

REACTIONS (2)
  - CEREBRAL HAEMORRHAGE [None]
  - PERIPHERAL EMBOLISM [None]
